FAERS Safety Report 20746118 (Version 1)
Quarter: 2022Q2

REPORT INFORMATION
  Report Type: Spontaneous
  Country: US (occurrence: US)
  Receive Date: 20220425
  Receipt Date: 20220425
  Transmission Date: 20220721
  Serious: Yes (Other)
  Sender: FDA-Public Use
  Company Number: US-PFIZER INC-202200584364

PATIENT
  Age: 65 Year
  Sex: Female
  Weight: 92.99 kg

DRUGS (2)
  1. GENOTROPIN [Suspect]
     Active Substance: SOMATROPIN
     Indication: Meningitis
     Dosage: UNK
  2. GENOTROPIN [Suspect]
     Active Substance: SOMATROPIN
     Dosage: UNK

REACTIONS (8)
  - Ankle operation [Unknown]
  - Memory impairment [Unknown]
  - Body height decreased [Unknown]
  - Weight increased [Unknown]
  - Osteoporosis [Unknown]
  - Off label use [Unknown]
  - Visual impairment [Unknown]
  - Drug dose omission by device [Unknown]
